FAERS Safety Report 9744671 (Version 1)
Quarter: 2013Q4

REPORT INFORMATION
  Report Type: Report from Study
  Country: TR (occurrence: TR)
  Receive Date: 20131210
  Receipt Date: 20131210
  Transmission Date: 20140711
  Serious: Yes (Hospitalization)
  Sender: FDA-Public Use
  Company Number: TR-US-EMD SERONO, INC.-7255599

PATIENT
  Age: 29 Year
  Sex: Female
  Weight: 58 kg

DRUGS (5)
  1. REBIF [Suspect]
     Indication: RELAPSING-REMITTING MULTIPLE SCLEROSIS
     Route: 058
     Dates: start: 2010
  2. NOOTROPIL [Suspect]
     Indication: BALANCE DISORDER
     Route: 048
     Dates: start: 2011
  3. MODIODAL [Suspect]
     Indication: ATTENTION DEFICIT/HYPERACTIVITY DISORDER
     Route: 048
     Dates: start: 2011
  4. LANSOR [Concomitant]
     Indication: GASTRIC DISORDER
     Route: 048
     Dates: start: 2011
  5. LAROXYL [Concomitant]
     Indication: ANTIDEPRESSANT THERAPY
     Route: 048
     Dates: start: 2011

REACTIONS (1)
  - Pneumonia [Recovering/Resolving]
